FAERS Safety Report 8541403-3 (Version None)
Quarter: 2012Q3

REPORT INFORMATION
  Report Type: 
  Country: None (occurrence: None)
  Receive Date: 20120726
  Receipt Date: 20120716
  Transmission Date: 20120928
  Serious: Yes (Other)
  Sender: FDA-Public Use
  Company Number: DE-ABBOTT-12P-062-0959981-00

PATIENT
  Age: 36 Year
  Sex: Female

DRUGS (6)
  1. DIAZEPAM [Suspect]
     Indication: CATATONIA
     Dosage: 20 MG DAILY
     Route: 048
  2. BENPERIDOL [Suspect]
     Indication: CATATONIA
     Dosage: 5 MG DAILY
     Route: 048
  3. BIPERIDEN HYDROCHLORIDE TAB [Suspect]
     Indication: CATATONIA
     Dosage: 4 MG DAILY
     Route: 048
  4. LEVOMEPROMAZINE [Suspect]
     Indication: CATATONIA
     Dosage: 75 MG DAILY
     Route: 048
  5. HALOPERIDOL [Concomitant]
     Indication: PRODUCT USED FOR UNKNOWN INDICATION
     Dosage: 10 MG DAILY
  6. DIAZEPAM [Suspect]
     Dosage: 30 MG DAILY
     Route: 048

REACTIONS (1)
  - HYPOTHERMIA [None]
